FAERS Safety Report 4345330-7 (Version None)
Quarter: 2004Q2

REPORT INFORMATION
  Report Type: 
  Country: None (occurrence: None)
  Receive Date: 20040422
  Receipt Date: 20040422
  Transmission Date: 20050107
  Serious: Yes (Hospitalization)
  Sender: FDA-Public Use
  Company Number: None

PATIENT
  Age: 48 Year
  Sex: Female
  Weight: 115.6672 kg

DRUGS (2)
  1. GEMZAR [Suspect]
     Indication: OVARIAN CANCER
     Dosage: 1000MG/M2 Q21DAY INTRAVENOUS
     Route: 042
     Dates: start: 20030630, end: 20030818
  2. EPOGEN [Concomitant]

REACTIONS (5)
  - BACTERIAL INFECTION [None]
  - BLOOD CULTURE POSITIVE [None]
  - CENTRAL LINE INFECTION [None]
  - CHILLS [None]
  - HAEMATOCRIT DECREASED [None]
